FAERS Safety Report 26020480 (Version 1)
Quarter: 2025Q4

REPORT INFORMATION
  Report Type: Spontaneous
  Country: US (occurrence: None)
  Receive Date: 20251109
  Receipt Date: 20251109
  Transmission Date: 20260118
  Serious: No
  Sender: FDA-CTU
  Company Number: None

PATIENT
  Age: 67 Year
  Sex: Female

DRUGS (1)
  1. TAXOL [Suspect]
     Active Substance: PACLITAXEL
     Dosage: OTHER FREQUENCY : ONCE;?
     Route: 041

REACTIONS (4)
  - Infusion related reaction [None]
  - Back pain [None]
  - Abdominal pain [None]
  - Oxygen saturation decreased [None]

NARRATIVE: CASE EVENT DATE: 20251108
